FAERS Safety Report 7547785-3 (Version None)
Quarter: 2011Q2

REPORT INFORMATION
  Report Type: 
  Country: None (occurrence: None)
  Receive Date: 20110615
  Receipt Date: 20110610
  Transmission Date: 20111010
  Serious: Yes (Death, Hospitalization)
  Sender: FDA-Public Use
  Company Number: US-BRISTOL-MYERS SQUIBB COMPANY-14481964

PATIENT
  Age: 54 Year
  Sex: Female
  Weight: 34 kg

DRUGS (2)
  1. CISPLATIN [Suspect]
     Indication: CERVIX CARCINOMA
     Dosage: 30MG/M2 WEEKLY X 6; FIRST COURSE STARTED ON 25-AUG-2008 GIVEN 1/1W
     Dates: start: 20080929, end: 20080929
  2. ERBITUX [Suspect]
     Indication: CERVIX CARCINOMA
     Dosage: 400MG/M2 INITIAL LOADING DOSE WEEK 1, 250MG/M2X5 WK;FIRST COURSE STARTED ON 25AUG08;GIVEN 1/1W
     Dates: start: 20080929, end: 20080929

REACTIONS (6)
  - PNEUMONIA [None]
  - SMALL INTESTINAL OBSTRUCTION [None]
  - VOMITING [None]
  - SEPTIC SHOCK [None]
  - ENTERITIS INFECTIOUS [None]
  - NAUSEA [None]
